FAERS Safety Report 5103630-7 (Version None)
Quarter: 2006Q3

REPORT INFORMATION
  Report Type: 
  Country: None (occurrence: None)
  Receive Date: 20060911
  Receipt Date: 20060911
  Transmission Date: 20061208
  Serious: Yes (Hospitalization, Other)
  Sender: FDA-Public Use
  Company Number: None

PATIENT
  Age: 32 Year
  Sex: Male
  Weight: 129.5 kg

DRUGS (1)
  1. ZOCOR 40 MG DAILY PO [Suspect]
     Indication: HYPERLIPIDAEMIA
     Dosage: 40 MG   DAILY   PO   (1 DOSE)
     Route: 048
     Dates: start: 20060830, end: 20060830

REACTIONS (4)
  - PYREXIA [None]
  - RENAL FAILURE ACUTE [None]
  - RHABDOMYOLYSIS [None]
  - TREATMENT NONCOMPLIANCE [None]
